FAERS Safety Report 9238018 (Version 1)
Quarter: 2013Q2

REPORT INFORMATION
  Report Type: Spontaneous
  Country: US (occurrence: None)
  Receive Date: 20130409
  Receipt Date: 20130409
  Transmission Date: 20140414
  Serious: Yes (Hospitalization)
  Sender: FDA-Public Use
  Company Number: 2013PROUSA02706

PATIENT
  Age: 75 Year
  Sex: Male
  Weight: 100.3 kg

DRUGS (12)
  1. PROVENGE (SIPULEUCEL-T) SUSPENSION, 250ML [Suspect]
     Indication: PROSTATE CANCER METASTATIC
     Dosage: SINGLE
     Route: 042
     Dates: start: 20130321, end: 20130321
  2. ZOLOFT (SERTRALINE HYDROCHLORIDE) [Concomitant]
  3. ZYTIGA (ABIRATERONE ACETATE) [Concomitant]
  4. CELEBREX (CELECOXIB) [Concomitant]
  5. LIPITOR (ATORVASTATIN CALCIUM) [Concomitant]
  6. AMLODIPINE (AMLODIPINE) [Concomitant]
  7. PRILOSEC (OMEPRAZOLE MAGNESIUM) [Concomitant]
  8. OXYCODONE (OXYCODONE) [Concomitant]
  9. OXYCODONE (OXYCODONE) [Concomitant]
  10. SODIUM CHLORIDE [Concomitant]
  11. TAMSULOSIN (TAMSULOSIN) [Concomitant]
  12. TRAMADOL + PARACETAMOL MEPHA (PARACETAMOL, TRAMADOL HYDROCHLORIDE) [Concomitant]

REACTIONS (2)
  - Acute myocardial infarction [None]
  - Atrial fibrillation [None]
